FAERS Safety Report 16275838 (Version 1)
Quarter: 2019Q2

REPORT INFORMATION
  Report Type: Spontaneous
  Country: US (occurrence: US)
  Receive Date: 20190504
  Receipt Date: 20190504
  Transmission Date: 20190711
  Serious: Yes (Other)
  Sender: FDA-Public Use
  Company Number: None

PATIENT
  Age: 37 Year
  Sex: Female
  Weight: 87.75 kg

DRUGS (4)
  1. BUPRENORPHINE/NALOXONE [Suspect]
     Active Substance: BUPRENORPHINE\NALOXONE
     Indication: DRUG DEPENDENCE
     Dosage: ?          OTHER STRENGTH:STRIPS;QUANTITY:1 STRIP;?
     Route: 060
  2. VITAMINS [Concomitant]
     Active Substance: VITAMINS
  3. CELEXA [Concomitant]
     Active Substance: CITALOPRAM HYDROBROMIDE
  4. SUBOXONE [Concomitant]
     Active Substance: BUPRENORPHINE HYDROCHLORIDE\NALOXONE HYDROCHLORIDE

REACTIONS (6)
  - Product substitution issue [None]
  - Pain [None]
  - Stomatitis [None]
  - Drug ineffective [None]
  - Hyperhidrosis [None]
  - Malaise [None]

NARRATIVE: CASE EVENT DATE: 20190325
